FAERS Safety Report 8576476-5 (Version None)
Quarter: 2012Q3

REPORT INFORMATION
  Report Type: 
  Country: None (occurrence: None)
  Receive Date: 20120807
  Receipt Date: 20120803
  Transmission Date: 20120928
  Serious: Yes (Hospitalization)
  Sender: FDA-Public Use
  Company Number: ES-AMGEN-ESPCT2012045117

PATIENT
  Age: 59 Year
  Sex: Female

DRUGS (3)
  1. PANITUMUMAB [Suspect]
     Indication: ANAL CANCER
     Dosage: 6 MG/KG, Q2WK
     Route: 042
     Dates: start: 20120611
  2. MITOMYCIN [Concomitant]
     Indication: ANAL CANCER
     Dosage: 10 MG/M2, QMO
     Route: 042
     Dates: start: 20120611
  3. FLUOROURACIL [Concomitant]
     Indication: ANAL CANCER
     Dosage: 1000 MG/M2, QMO
     Route: 042
     Dates: start: 20120611

REACTIONS (1)
  - FEBRILE NEUTROPENIA [None]
